FAERS Safety Report 24048767 (Version 3)
Quarter: 2025Q1

REPORT INFORMATION
  Report Type: Spontaneous
  Country: GB (occurrence: GB)
  Receive Date: 20240704
  Receipt Date: 20250117
  Transmission Date: 20250409
  Serious: Yes (Other)
  Sender: AMGEN
  Company Number: GB-Vifor (International) Inc.-VIT-2024-05693

PATIENT
  Age: 80 Year
  Sex: Male
  Weight: 70.1 kg

DRUGS (8)
  1. TAVNEOS [Suspect]
     Active Substance: AVACOPAN
     Indication: Anti-neutrophil cytoplasmic antibody positive vasculitis
     Dosage: 30,MG,BID
     Route: 048
     Dates: start: 20240515
  2. RITUXIMAB [Concomitant]
     Active Substance: RITUXIMAB
     Indication: Anti-neutrophil cytoplasmic antibody positive vasculitis
     Route: 042
     Dates: start: 20240517, end: 20240517
  3. RITUXIMAB [Concomitant]
     Active Substance: RITUXIMAB
     Route: 042
     Dates: start: 20240531, end: 20240531
  4. RITUXIMAB [Concomitant]
     Active Substance: RITUXIMAB
     Route: 040
     Dates: start: 20241129, end: 20241129
  5. RITUXIMAB [Concomitant]
     Active Substance: RITUXIMAB
     Route: 040
     Dates: start: 20241129, end: 20241129
  6. PREDNISOLONE [Concomitant]
     Active Substance: PREDNISOLONE
     Indication: Anti-neutrophil cytoplasmic antibody positive vasculitis
     Dosage: 60 MG, QD COMPLETION OF PLANNED COURSE
     Route: 048
     Dates: start: 20240508, end: 20240514
  7. PREDNISOLONE [Concomitant]
     Active Substance: PREDNISOLONE
     Dosage: 30 MG, QD COMPLETION OF PLANNED COURSE
     Route: 048
     Dates: start: 20240515, end: 20240522
  8. PREDNISOLONE [Concomitant]
     Active Substance: PREDNISOLONE
     Dosage: 20 MG, QD COMPLETION OF PLANNED COURSE
     Route: 048
     Dates: start: 20240523, end: 20240530

REACTIONS (4)
  - Bronchiectasis [Not Recovered/Not Resolved]
  - Lower respiratory tract infection [Recovered/Resolved]
  - C-reactive protein increased [Not Recovered/Not Resolved]
  - Dyspnoea [Recovered/Resolved]

NARRATIVE: CASE EVENT DATE: 20240516
